FAERS Safety Report 13776074 (Version 11)
Quarter: 2018Q2

REPORT INFORMATION
  Report Type: Spontaneous
  Country: US (occurrence: US)
  Receive Date: 20170720
  Receipt Date: 20180507
  Transmission Date: 20180711
  Serious: Yes (Hospitalization)
  Sender: FDA-Public Use
  Company Number: PHEH2017US022391

PATIENT
  Sex: Female

DRUGS (3)
  1. AFINITOR [Suspect]
     Active Substance: EVEROLIMUS
     Indication: RENAL CANCER
     Dosage: UNK
     Route: 065
  2. LENVATINIB [Suspect]
     Active Substance: LENVATINIB
     Dosage: 14 MG, QD
     Route: 048
     Dates: start: 20170701
  3. LENVATINIB [Suspect]
     Active Substance: LENVATINIB
     Indication: RENAL CANCER
     Dosage: 14 MG, QD
     Route: 048
     Dates: start: 20170630

REACTIONS (15)
  - Thyroid disorder [Unknown]
  - Blood glucose increased [Recovering/Resolving]
  - Hypertension [Unknown]
  - Diabetes mellitus [Unknown]
  - Sinusitis [Recovering/Resolving]
  - Neck pain [Unknown]
  - Thyroid hormones increased [Not Recovered/Not Resolved]
  - Burning sensation [Unknown]
  - Sinonasal obstruction [Unknown]
  - Dry skin [Unknown]
  - Skin ulcer [Unknown]
  - Headache [Unknown]
  - Skin lesion [Unknown]
  - Fatigue [Not Recovered/Not Resolved]
  - Stomatitis [Not Recovered/Not Resolved]
